FAERS Safety Report 16893799 (Version 3)
Quarter: 2019Q4

REPORT INFORMATION
  Report Type: Spontaneous
  Country: RU (occurrence: RU)
  Receive Date: 20191008
  Receipt Date: 20191107
  Transmission Date: 20200122
  Serious: Yes (Hospitalization, Other)
  Sender: FDA-Public Use
  Company Number: RU-JNJFOC-20191002280

PATIENT
  Age: 82 Year
  Sex: Male

DRUGS (7)
  1. METROGYL                           /00012501/ [Concomitant]
     Active Substance: METRONIDAZOLE
  2. ZINKIT [Concomitant]
     Dates: start: 201908
  3. HEPATHROMBIN H                     /03459201/ [Interacting]
     Active Substance: ALLANTOIN\DEXPANTHENOL\HEPARIN
     Indication: HAEMORRHOIDS
     Dosage: UNK
     Route: 065
  4. LOZAP H [Concomitant]
     Active Substance: HYDROCHLOROTHIAZIDE\LOSARTAN POTASSIUM
  5. SOTAHEXAL [Concomitant]
     Active Substance: SOTALOL
  6. OMNIC [Concomitant]
     Active Substance: TAMSULOSIN HYDROCHLORIDE
     Dosage: UNK
     Dates: start: 201908
  7. RIVAROXABAN [Suspect]
     Active Substance: RIVAROXABAN
     Indication: PRODUCT USED FOR UNKNOWN INDICATION
     Dosage: 15 MG
     Route: 048
     Dates: start: 201902

REACTIONS (7)
  - Pneumonia [Unknown]
  - Frequent bowel movements [Recovered/Resolved]
  - Heart rate increased [Recovered/Resolved]
  - Prothrombin level abnormal [Unknown]
  - Blood pressure increased [Recovered/Resolved]
  - Drug interaction [Unknown]
  - Haemorrhoids [Unknown]

NARRATIVE: CASE EVENT DATE: 2019
